FAERS Safety Report 13279194 (Version 1)
Quarter: 2017Q1

REPORT INFORMATION
  Report Type: Report from Study
  Country: None (occurrence: US)
  Receive Date: 20170228
  Receipt Date: 20170228
  Transmission Date: 20170428
  Serious: No
  Sender: FDA-Public Use
  Company Number: US-AMAG PHARMACEUTICALS, INC.-AMAG201600550

PATIENT

DRUGS (3)
  1. PROCARDIA [Concomitant]
     Active Substance: NIFEDIPINE
     Indication: UTERINE CONTRACTIONS DURING PREGNANCY
     Dosage: 10 ML, Q6H
     Dates: start: 20160324
  2. PRENATAL VITAMINS [Concomitant]
     Active Substance: VITAMINS
     Indication: PREGNANCY
     Dosage: 1 TABS, UNK
     Dates: start: 20151010
  3. MAKENA [Suspect]
     Active Substance: HYDROXYPROGESTERONE CAPROATE
     Indication: PRODUCT USED FOR UNKNOWN INDICATION
     Dosage: 250 MG, UNK
     Route: 030
     Dates: start: 20151209

REACTIONS (6)
  - Tachycardia [Recovered/Resolved]
  - Cold sweat [Recovered/Resolved]
  - Injection site swelling [Recovered/Resolved]
  - Nausea [Recovered/Resolved]
  - Paraesthesia oral [Recovered/Resolved]
  - Dizziness [Recovered/Resolved]

NARRATIVE: CASE EVENT DATE: 20160319
